FAERS Safety Report 5299405-9 (Version None)
Quarter: 2007Q2

REPORT INFORMATION
  Report Type: 
  Country: None (occurrence: None)
  Receive Date: 20070417
  Receipt Date: 20070405
  Transmission Date: 20071010
  Serious: Yes (Other)
  Sender: FDA-Public Use
  Company Number: PHBS2007JP06143

PATIENT

DRUGS (2)
  1. DRUG THERAPY NOS [Suspect]
  2. SANDIMMUNE [Suspect]
     Indication: JUVENILE ARTHRITIS
     Route: 042

REACTIONS (1)
  - PANCREATIC DISORDER [None]
